FAERS Safety Report 20959148 (Version 1)
Quarter: 2022Q2

REPORT INFORMATION
  Report Type: Spontaneous
  Country: CH (occurrence: CH)
  Receive Date: 20220614
  Receipt Date: 20220614
  Transmission Date: 20220721
  Serious: Yes (Other)
  Sender: FDA-Public Use
  Company Number: None

PATIENT
  Age: 18 Year
  Sex: Female
  Weight: 126 kg

DRUGS (16)
  1. MYFORTIC [Interacting]
     Active Substance: MYCOPHENOLATE SODIUM
     Indication: Conjunctivitis
     Dosage: 1080 MG, Q12H (360 MG) (3-0-3-0)
     Route: 048
     Dates: start: 2020
  2. METAMIZOLE [Interacting]
     Active Substance: METAMIZOLE
     Indication: Back pain
     Dosage: 500 MG
     Route: 048
     Dates: start: 20220419
  3. METAMIZOLE [Interacting]
     Active Substance: METAMIZOLE
     Dosage: 2 DOSAGE FORM, QID
     Route: 065
     Dates: start: 20220421, end: 20220504
  4. METAMIZOLE [Interacting]
     Active Substance: METAMIZOLE
     Dosage: 2 DOSAGE FORM, QD
     Route: 065
     Dates: start: 20220509
  5. METAMIZOLE [Interacting]
     Active Substance: METAMIZOLE
     Dosage: 2 DOSAGE FORM, TID
     Route: 065
     Dates: start: 20220510
  6. METAMIZOLE [Interacting]
     Active Substance: METAMIZOLE
     Dosage: 2 DOSAGE FORM, QD
     Route: 065
     Dates: start: 20220511, end: 20220511
  7. PANTOZOL [Concomitant]
     Active Substance: PANTOPRAZOLE SODIUM
     Indication: Product used for unknown indication
     Dosage: UNK
     Route: 065
  8. VITAMIN D3 [Concomitant]
     Active Substance: CHOLECALCIFEROL
     Indication: Product used for unknown indication
     Dosage: UNK
     Route: 065
  9. KCL HAUSMANN [Concomitant]
     Indication: Product used for unknown indication
     Dosage: UNK
     Route: 065
  10. MAGNESIUM ASPARTATE HYDROCHLORIDE [Concomitant]
     Active Substance: MAGNESIUM ASPARTATE HYDROCHLORIDE
     Indication: Product used for unknown indication
     Dosage: UNK
     Route: 065
  11. SELENASE [Concomitant]
     Indication: Product used for unknown indication
     Dosage: UNK
     Route: 065
  12. ARCOXIA [Concomitant]
     Active Substance: ETORICOXIB
     Indication: Product used for unknown indication
     Dosage: UNK
     Route: 065
  13. MORPHINE SULFATE [Concomitant]
     Active Substance: MORPHINE SULFATE
     Indication: Product used for unknown indication
     Dosage: UNK
     Route: 065
  14. FLUCLOXACILLIN [Concomitant]
     Active Substance: FLUCLOXACILLIN
     Indication: Product used for unknown indication
     Dosage: UNK
     Route: 065
  15. ENOXAPARIN SODIUM [Concomitant]
     Active Substance: ENOXAPARIN SODIUM
     Indication: Product used for unknown indication
     Dosage: UNK
     Route: 065
  16. DAFALGAN [Concomitant]
     Active Substance: ACETAMINOPHEN
     Indication: Product used for unknown indication
     Dosage: UNK
     Route: 065

REACTIONS (2)
  - Neutropenia [Recovered/Resolved]
  - Drug interaction [Recovered/Resolved]

NARRATIVE: CASE EVENT DATE: 20220511
